FAERS Safety Report 7212633-8 (Version None)
Quarter: 2011Q1

REPORT INFORMATION
  Report Type: 
  Country: None (occurrence: None)
  Receive Date: 20110106
  Receipt Date: 20110103
  Transmission Date: 20110831
  Serious: Yes (Death)
  Sender: FDA-Public Use
  Company Number: US-JNJFOC-20080102019

PATIENT
  Age: 33 Year
  Sex: Male

DRUGS (3)
  1. QUETIAPINE [Suspect]
     Indication: SUICIDE ATTEMPT
     Route: 048
  2. ASPIRIN [Suspect]
     Indication: SUICIDE ATTEMPT
     Route: 048
  3. CLONAZEPAM [Suspect]
     Indication: SUICIDE ATTEMPT
     Route: 048

REACTIONS (2)
  - TOXICITY TO VARIOUS AGENTS [None]
  - COMPLETED SUICIDE [None]
